FAERS Safety Report 9958053 (Version 2)
Quarter: 2014Q1

REPORT INFORMATION
  Report Type: Report from Study
  Country: US (occurrence: US)
  Receive Date: 20140304
  Receipt Date: 20140304
  Transmission Date: 20141002
  Serious: No
  Sender: FDA-Public Use
  Company Number: US-ABBVIE-13P-163-1075265-00

PATIENT
  Age: 35 Year
  Sex: Male

DRUGS (3)
  1. HUMIRA [Suspect]
     Indication: PSORIASIS
     Dates: start: 20130322, end: 20130322
  2. HUMIRA [Suspect]
     Dates: start: 20130329
  3. CLOBETASOL [Concomitant]
     Indication: SKIN DISORDER

REACTIONS (1)
  - Drug ineffective [Not Recovered/Not Resolved]
